FAERS Safety Report 5271451-0 (Version None)
Quarter: 2007Q1

REPORT INFORMATION
  Report Type: 
  Country: None (occurrence: None)
  Receive Date: 20070321
  Receipt Date: 20070314
  Transmission Date: 20070707
  Serious: Yes (Life-Threatening, Hospitalization)
  Sender: FDA-Public Use
  Company Number: CN-SHR-CN-2007-009156

PATIENT
  Age: 53 Year
  Sex: Male

DRUGS (1)
  1. ULTRAVIST 300 [Suspect]
     Indication: COMPUTERISED TOMOGRAM ABDOMEN
     Dosage: 100 ML, 1 DOSE
     Route: 040
     Dates: start: 20070312, end: 20070312

REACTIONS (5)
  - BLOOD PRESSURE IMMEASURABLE [None]
  - DRY MOUTH [None]
  - EYE SWELLING [None]
  - OCULAR HYPERAEMIA [None]
  - SHOCK [None]
